FAERS Safety Report 23111897 (Version 1)
Quarter: 2023Q4

REPORT INFORMATION
  Report Type: Spontaneous
  Country: DK (occurrence: DK)
  Receive Date: 20231026
  Receipt Date: 20231026
  Transmission Date: 20240110
  Serious: Yes (Other)
  Sender: FDA-Public Use
  Company Number: DK-TEVA-2023-DK-2930502

PATIENT
  Age: 33 Year
  Sex: Female

DRUGS (2)
  1. DIAZEPAM [Suspect]
     Active Substance: DIAZEPAM
     Indication: Seizure
     Dosage: SINGLE-DOSE CONTAINER
     Route: 065
  2. DIAZEPAM [Suspect]
     Active Substance: DIAZEPAM
     Dosage: 10 MG/DOSE
     Route: 054

REACTIONS (9)
  - Drug ineffective [Unknown]
  - Epilepsy [Unknown]
  - Incorrect dose administered [Unknown]
  - Product use complaint [Unknown]
  - Underdose [Unknown]
  - Injury associated with device [Unknown]
  - Abnormal behaviour [Unknown]
  - Dizziness [Unknown]
  - Sleep disorder [Unknown]

NARRATIVE: CASE EVENT DATE: 20231009
